FAERS Safety Report 7321872-7 (Version None)
Quarter: 2011Q1

REPORT INFORMATION
  Report Type: 
  Country: None (occurrence: None)
  Receive Date: 20110228
  Receipt Date: 20110225
  Transmission Date: 20110831
  Serious: Yes (Congenital Anomaly)
  Sender: FDA-Public Use
  Company Number: GXKR2011DE01052

PATIENT
  Sex: Male
  Weight: 3.7 kg

DRUGS (4)
  1. CERAZETTE [Concomitant]
     Indication: ORAL CONTRACEPTION
     Dosage: UNK
     Route: 064
  2. FOLIC ACID [Concomitant]
     Route: 064
  3. PROMETHAZINE [Suspect]
     Route: 064
  4. ACETAMINOPHEN [Concomitant]
     Route: 064

REACTIONS (2)
  - DRUG EXPOSURE DURING PREGNANCY [None]
  - TALIPES [None]
